FAERS Safety Report 10027348 (Version 1)
Quarter: 2014Q1

REPORT INFORMATION
  Report Type: Spontaneous
  Country: US (occurrence: US)
  Receive Date: 20140321
  Receipt Date: 20140321
  Transmission Date: 20141002
  Serious: No
  Sender: FDA-Public Use
  Company Number: US-009507513-1403USA000662

PATIENT
  Age: 7 Year
  Sex: Female
  Weight: 29.48 kg

DRUGS (3)
  1. CLARITIN ORAL SOLUTION [Suspect]
     Indication: HYPERSENSITIVITY
     Dosage: 10 MG, BID
     Route: 048
     Dates: start: 20140214
  2. CLARITIN ORAL SOLUTION [Suspect]
     Dosage: 10 MG, QD
     Route: 048
  3. DIMETAPP (NEW FORMULA) [Concomitant]
     Indication: PRODUCT USED FOR UNKNOWN INDICATION
     Dosage: 1 DF, ONCE
     Route: 048
     Dates: start: 20140214

REACTIONS (1)
  - Accidental overdose [Recovering/Resolving]
